FAERS Safety Report 23093938 (Version 2)
Quarter: 2024Q3

REPORT INFORMATION
  Report Type: Spontaneous
  Country: FR (occurrence: FR)
  Receive Date: 20231023
  Receipt Date: 20240725
  Transmission Date: 20241017
  Serious: Yes (Death)
  Sender: EMD SERONO INC
  Company Number: FR-Merck Healthcare KGaA-9371913

PATIENT
  Age: 76 Year
  Sex: Female

DRUGS (3)
  1. FLUINDIONE [Suspect]
     Active Substance: FLUINDIONE
     Indication: Product used for unknown indication
  2. LEVOTHYROXINE [Suspect]
     Active Substance: LEVOTHYROXINE\LEVOTHYROXINE SODIUM
     Indication: Hypothyroidism
  3. INSULIN NOS [Concomitant]
     Active Substance: INSULIN NOS
     Indication: Product used for unknown indication

REACTIONS (4)
  - Death [Fatal]
  - Vision blurred [Unknown]
  - Palpitations [Unknown]
  - Dyspnoea [Unknown]

NARRATIVE: CASE EVENT DATE: 20210401
